FAERS Safety Report 21397724 (Version 3)
Quarter: 2022Q4

REPORT INFORMATION
  Report Type: Report from Study
  Country: DE (occurrence: DE)
  Receive Date: 20220930
  Receipt Date: 20221110
  Transmission Date: 20230113
  Serious: Yes (Hospitalization, Other)
  Sender: FDA-Public Use
  Company Number: DE-SANOFI-01282282

PATIENT
  Sex: Female

DRUGS (2)
  1. SUTIMLIMAB [Suspect]
     Active Substance: SUTIMLIMAB
     Indication: Haemolysis
     Dosage: UNK
  2. SUTIMLIMAB [Suspect]
     Active Substance: SUTIMLIMAB
     Indication: Dermatitis atopic

REACTIONS (5)
  - Hypertensive crisis [Unknown]
  - Intravascular haemolysis [Unknown]
  - Haemolysis [Unknown]
  - Blood lactate dehydrogenase increased [Unknown]
  - Disease progression [Unknown]

NARRATIVE: CASE EVENT DATE: 20220901
